FAERS Safety Report 10661201 (Version 1)
Quarter: 2014Q4

REPORT INFORMATION
  Report Type: Spontaneous
  Country: US (occurrence: None)
  Receive Date: 20141216
  Receipt Date: 20141216
  Transmission Date: 20150529
  Serious: Yes (Hospitalization, Disabling, Other)
  Sender: FDA-Public Use
  Company Number: None

PATIENT
  Age: 26 Year
  Sex: Female
  Weight: 66.68 kg

DRUGS (1)
  1. KENALOG [Suspect]
     Active Substance: TRIAMCINOLONE ACETONIDE
     Indication: SEASONAL ALLERGY
     Dosage: ONE INJECTION; INTO THE MUSCLE
     Route: 030

REACTIONS (4)
  - Back pain [None]
  - Arthralgia [None]
  - Injection site reaction [None]
  - Deformity [None]

NARRATIVE: CASE EVENT DATE: 20140815
